FAERS Safety Report 8906218 (Version 1)
Quarter: 2012Q4

REPORT INFORMATION
  Report Type: Spontaneous
  Country: US (occurrence: None)
  Receive Date: 20121107
  Receipt Date: 20121107
  Transmission Date: 20130627
  Serious: Yes (Hospitalization)
  Sender: FDA-Public Use
  Company Number: USA/USA/12/0026391

PATIENT
  Age: 90 Year
  Sex: Female

DRUGS (3)
  1. GEMCITABINE [Suspect]
     Indication: PANCREATIC ADENOCARCINOMA
     Dosage: M
  2. ERLOTINIB [Suspect]
     Indication: PANCREATIC ADENOCARCINOMA
     Dosage: M
  3. AMIODARONE [Suspect]
     Indication: DRUG USE FOR UNKNOWN INDICATION

REACTIONS (12)
  - Deep vein thrombosis [None]
  - Pulmonary toxicity [None]
  - Lung infiltration [None]
  - Oedema peripheral [None]
  - Pulmonary oedema [None]
  - Respiratory failure [None]
  - Acute respiratory distress syndrome [None]
  - Tachycardia [None]
  - Tachypnoea [None]
  - Haemoglobin decreased [None]
  - Pyrexia [None]
  - Leukocytosis [None]
